FAERS Safety Report 6589129-X (Version None)
Quarter: 2010Q1

REPORT INFORMATION
  Report Type: 
  Country: None (occurrence: None)
  Receive Date: 20100202
  Receipt Date: 20091116
  Transmission Date: 20100710
  Serious: Yes (Hospitalization)
  Sender: FDA-Public Use
  Company Number: WAES 0911USA02884

PATIENT
  Age: 81 Year
  Sex: Male

DRUGS (8)
  1. JANUMET [Suspect]
     Indication: DIABETES MELLITUS
     Dosage: 1000MG/50 MG/PO
     Route: 048
     Dates: start: 20090422, end: 20091105
  2. BENICAR [Concomitant]
  3. NAMENDA [Concomitant]
  4. PEPCID [Concomitant]
  5. PROVIGIL [Concomitant]
  6. UROXATRAL [Concomitant]
  7. ZOCOR [Concomitant]
  8. TESTOSTERONE [Concomitant]

REACTIONS (1)
  - PANCREATITIS [None]
